FAERS Safety Report 10377048 (Version 4)
Quarter: 2014Q4

REPORT INFORMATION
  Report Type: Spontaneous
  Country: JP (occurrence: JP)
  Receive Date: 20140812
  Receipt Date: 20141203
  Transmission Date: 20150528
  Serious: Yes (Death, Life-Threatening)
  Sender: FDA-Public Use
  Company Number: JP-ROCHE-1446716

PATIENT
  Age: 78 Year
  Sex: Male

DRUGS (5)
  1. RESTAMIN KOWA [Concomitant]
     Route: 048
     Dates: start: 20140730, end: 20140801
  2. RITUXIMAB [Suspect]
     Active Substance: RITUXIMAB
     Indication: DIFFUSE LARGE B-CELL LYMPHOMA
     Route: 042
     Dates: start: 20140730
  3. CALONAL [Concomitant]
     Active Substance: ACETAMINOPHEN
     Route: 048
     Dates: start: 20140730, end: 20140801
  4. ALOSITOL [Concomitant]
     Active Substance: ALLOPURINOL
     Route: 048
     Dates: start: 20140731, end: 20140801
  5. RITUXIMAB [Suspect]
     Active Substance: RITUXIMAB
     Indication: NON-HODGKIN^S LYMPHOMA
     Route: 042

REACTIONS (2)
  - Tumour lysis syndrome [Fatal]
  - Infusion related reaction [Unknown]

NARRATIVE: CASE EVENT DATE: 20140730
